FAERS Safety Report 5638119-X (Version None)
Quarter: 2008Q1

REPORT INFORMATION
  Report Type: 
  Country: None (occurrence: None)
  Receive Date: 20080226
  Receipt Date: 20080219
  Transmission Date: 20080703
  Serious: Yes (Hospitalization)
  Sender: FDA-Public Use
  Company Number: NL-WYE-G01091308

PATIENT
  Age: 50 Year
  Sex: Male

DRUGS (1)
  1. VENLAFAXINE HYDROCHLORIDE [Suspect]
     Dates: start: 19990101

REACTIONS (3)
  - HYPOTONIA [None]
  - LOSS OF CONSCIOUSNESS [None]
  - ROAD TRAFFIC ACCIDENT [None]
